FAERS Safety Report 22335352 (Version 2)
Quarter: 2023Q2

REPORT INFORMATION
  Report Type: Spontaneous
  Country: US (occurrence: US)
  Receive Date: 20230518
  Receipt Date: 20230607
  Transmission Date: 20230722
  Serious: No
  Sender: FDA-Public Use
  Company Number: US-Ipsen Biopharmaceuticals, Inc.-2023-10422

PATIENT
  Weight: 36.74 kg

DRUGS (2)
  1. DYSPORT [Suspect]
     Active Substance: ABOBOTULINUMTOXINA
     Indication: Muscle spasticity
     Dosage: MEDIAL GASTROC: DILUTION 2.5:1, DOSE 100 UNITS, INJECTION WAS TWO SITES, EMG SCORE 2+; LATERAL GASTR
     Route: 065
     Dates: start: 20221019, end: 20221019
  2. DYSPORT [Suspect]
     Active Substance: ABOBOTULINUMTOXINA
     Dosage: MEDIAL GASTROC: DILUTION 2.5:1, DOSE 100 UNITS, TWO SITES, EMG SCORE 2+; LATERAL GASTROC:?DILUTION 2
     Route: 065
     Dates: start: 20230209, end: 20230209

REACTIONS (2)
  - Skin discolouration [Unknown]
  - Peripheral coldness [Unknown]

NARRATIVE: CASE EVENT DATE: 20221109
